FAERS Safety Report 23401026 (Version 1)
Quarter: 2024Q1

REPORT INFORMATION
  Report Type: Spontaneous
  Country: IR (occurrence: IR)
  Receive Date: 20240115
  Receipt Date: 20240115
  Transmission Date: 20240410
  Serious: Yes (Hospitalization)
  Sender: FDA-Public Use
  Company Number: IR-EPICPHARMA-IR-2024EPCLIT00019

PATIENT
  Age: 6 Day
  Sex: Male
  Weight: 2.15 kg

DRUGS (3)
  1. GENTAMICIN SULFATE [Suspect]
     Active Substance: GENTAMICIN SULFATE
     Indication: Product used for unknown indication
     Route: 042
  2. AMPICILLIN [Suspect]
     Active Substance: AMPICILLIN
     Indication: Product used for unknown indication
     Route: 042
  3. CEFOTAXIME [Suspect]
     Active Substance: CEFOTAXIME SODIUM
     Indication: Product used for unknown indication
     Route: 042

REACTIONS (3)
  - Catheter site extravasation [Recovering/Resolving]
  - Catheter site injury [Recovering/Resolving]
  - Medication error [Unknown]
